FAERS Safety Report 6080228-8 (Version None)
Quarter: 2009Q1

REPORT INFORMATION
  Report Type: 
  Country: None (occurrence: None)
  Receive Date: 20090217
  Receipt Date: 20090210
  Transmission Date: 20090719
  Serious: Yes (Hospitalization)
  Sender: FDA-Public Use
  Company Number: US-ELI_LILLY_AND_COMPANY-US200902002134

PATIENT
  Sex: Female

DRUGS (5)
  1. HUMALOG [Suspect]
  2. HUMULIN R [Suspect]
  3. LANTUS [Concomitant]
     Indication: TYPE 1 DIABETES MELLITUS
  4. ATENOLOL [Concomitant]
     Indication: CARDIAC DISORDER
  5. SIMVASTATIN [Concomitant]
     Indication: BLOOD CHOLESTEROL

REACTIONS (2)
  - ASTHENIA [None]
  - DEPRESSION [None]
